FAERS Safety Report 4511674-9 (Version None)
Quarter: 2004Q4

REPORT INFORMATION
  Report Type: 
  Country: None (occurrence: None)
  Receive Date: 20041118
  Receipt Date: 20041118
  Transmission Date: 20050328
  Serious: Yes (Hospitalization)
  Sender: FDA-Public Use
  Company Number: None

PATIENT
  Sex: Male
  Weight: 99.7913 kg

DRUGS (9)
  1. IRINOTECAN [Suspect]
     Indication: NON-SMALL CELL LUNG CANCER
     Dosage: 100 MG /M2 IV WEEKLY X 2 WKS/CYCLE OF 3 WKS
     Route: 042
  2. IRINOTECAN [Suspect]
     Indication: NON-SMALL CELL LUNG CANCER
  3. CAMPTOSAR [Suspect]
     Indication: NON-SMALL CELL LUNG CANCER
  4. GEMCITABINE [Suspect]
     Indication: NON-SMALL CELL LUNG CANCER
     Dosage: 1000 MG/M2 IV WITH WKS/ EVE 3 WEEK CYCLE
     Route: 042
  5. GEMZAR [Suspect]
     Indication: NON-SMALL CELL LUNG CANCER
  6. THALIDOMIDE [Concomitant]
  7. HYTRIL [Concomitant]
  8. COUMADIN [Concomitant]
  9. LIPITOR [Concomitant]

REACTIONS (3)
  - ABDOMINAL PAIN [None]
  - DIARRHOEA [None]
  - PYREXIA [None]
